FAERS Safety Report 19283984 (Version 1)
Quarter: 2021Q2

REPORT INFORMATION
  Report Type: Spontaneous
  Country: US (occurrence: US)
  Receive Date: 20210521
  Receipt Date: 20210521
  Transmission Date: 20210717
  Serious: Yes (Hospitalization)
  Sender: FDA-Public Use
  Company Number: None

PATIENT
  Age: 52 Year
  Sex: Male
  Weight: 72.7 kg

DRUGS (2)
  1. CEFEPIME [Suspect]
     Active Substance: CEFEPIME HYDROCHLORIDE
     Indication: PERINEPHRIC ABSCESS
     Route: 042
     Dates: start: 20210503, end: 20210521
  2. CEFEPIME [Suspect]
     Active Substance: CEFEPIME HYDROCHLORIDE
     Indication: RENAL ABSCESS
     Route: 042
     Dates: start: 20210503, end: 20210521

REACTIONS (4)
  - Abdominal discomfort [None]
  - Vomiting [None]
  - Blood urea increased [None]
  - Blood creatinine increased [None]

NARRATIVE: CASE EVENT DATE: 20210521
